FAERS Safety Report 14608399 (Version 2)
Quarter: 2018Q1

REPORT INFORMATION
  Report Type: Spontaneous
  Country: US (occurrence: US)
  Receive Date: 20180307
  Receipt Date: 20180323
  Transmission Date: 20180509
  Serious: Yes (Death)
  Sender: FDA-Public Use
  Company Number: US-ASTRAZENECA-2018SE25914

PATIENT
  Age: 69 Year
  Sex: Male

DRUGS (7)
  1. OLAPARIB. [Suspect]
     Active Substance: OLAPARIB
     Indication: PROSTATE CANCER
     Route: 048
     Dates: start: 201506
  2. DOCETAXEL. [Concomitant]
     Active Substance: DOCETAXEL
     Indication: PROSTATE CANCER
     Route: 065
  3. LEUPROLIDE [Concomitant]
     Active Substance: LEUPROLIDE
  4. ABIRATERONE [Concomitant]
     Active Substance: ABIRATERONE
  5. SIPULEUCEL-T [Concomitant]
     Active Substance: SIPULEUCEL-T
     Dates: start: 201405
  6. PREDNISONE. [Concomitant]
     Active Substance: PREDNISONE
  7. CARBOPLATIN. [Concomitant]
     Active Substance: CARBOPLATIN

REACTIONS (6)
  - Respiratory failure [Fatal]
  - Erythroleukaemia [Fatal]
  - Product use in unapproved indication [Unknown]
  - Off label use [Unknown]
  - Multiple organ dysfunction syndrome [Fatal]
  - Pneumonia [Fatal]
